FAERS Safety Report 7725357-5 (Version None)
Quarter: 2011Q3

REPORT INFORMATION
  Report Type: 
  Country: None (occurrence: None)
  Receive Date: 20110829
  Receipt Date: 20110815
  Transmission Date: 20111222
  Serious: Yes (Death)
  Sender: FDA-Public Use
  Company Number: 11-061-04

PATIENT

DRUGS (1)
  1. AMLODIPINE [Suspect]

REACTIONS (2)
  - DRUG LEVEL ABOVE THERAPEUTIC [None]
  - METABOLIC DISORDER [None]
